FAERS Safety Report 8832001 (Version 1)
Quarter: 2012Q4

REPORT INFORMATION
  Report Type: 
  Country: US (occurrence: US)
  Receive Date: 20121009
  Receipt Date: 20121009
  Transmission Date: 20130627
  Serious: Yes (Hospitalization, Other)
  Sender: FDA-Public Use
  Company Number: US-ROCHE-1131388

PATIENT
  Sex: Male
  Weight: 78.09 kg

DRUGS (9)
  1. RITUXAN [Suspect]
     Indication: WALDENSTROM^S MACROGLOBULINAEMIA
     Route: 042
  2. RITUXAN [Suspect]
     Indication: NON-HODGKIN^S LYMPHOMA
  3. RITUXAN [Suspect]
     Indication: OFF LABEL USE
  4. TYLENOL [Concomitant]
     Route: 065
  5. BENADRYL [Concomitant]
     Route: 065
  6. CIMETIDINE [Concomitant]
     Route: 065
  7. ANZEMET [Concomitant]
     Route: 065
  8. NEUPOGEN [Concomitant]
     Route: 065
  9. ITRACONAZOLE [Concomitant]

REACTIONS (7)
  - Bronchopulmonary aspergillosis [Unknown]
  - Bacteraemia [Unknown]
  - Flushing [Unknown]
  - Diarrhoea haemorrhagic [Unknown]
  - Flushing [Unknown]
  - Headache [Unknown]
  - Rash [Unknown]
